FAERS Safety Report 8511012-0 (Version None)
Quarter: 2012Q3

REPORT INFORMATION
  Report Type: 
  Country: None (occurrence: None)
  Receive Date: 20120716
  Receipt Date: 20120706
  Transmission Date: 20120928
  Serious: Yes (Other)
  Sender: FDA-Public Use
  Company Number: CA-JNJFOC-20120703132

PATIENT
  Sex: Female
  Weight: 74 kg

DRUGS (8)
  1. OMEPRAZOLE [Concomitant]
     Route: 048
  2. AZATHIOPRINE [Concomitant]
     Route: 048
  3. PROMETRIUM [Concomitant]
     Route: 048
  4. REMICADE [Suspect]
     Indication: COLITIS ULCERATIVE
     Dosage: 8/52
     Route: 042
     Dates: start: 20110125
  5. REMICADE [Suspect]
     Indication: CROHN'S DISEASE
     Dosage: 8/52
     Route: 042
     Dates: start: 20110125
  6. ESTROGEL [Concomitant]
     Route: 048
  7. KETOROLAC TROMETHAMINE [Concomitant]
     Route: 048
  8. SULFASALAZINE [Concomitant]
     Route: 048

REACTIONS (1)
  - VITREOUS HAEMORRHAGE [None]
